FAERS Safety Report 11981952 (Version 1)
Quarter: 2016Q1

REPORT INFORMATION
  Report Type: Spontaneous
  Country: US (occurrence: None)
  Receive Date: 20160129
  Receipt Date: 20160129
  Transmission Date: 20160526
  Serious: Yes (Other)
  Sender: FDA-Public Use
  Company Number: None

PATIENT
  Age: 59 Year

DRUGS (1)
  1. COSENTYX [Suspect]
     Active Substance: SECUKINUMAB
     Indication: PSORIASIS
     Dosage: 150MG/ML  2ML EVERY 4 WEEKS SUBCUTANEOUS
     Route: 058
     Dates: start: 20150904

REACTIONS (1)
  - Headache [None]

NARRATIVE: CASE EVENT DATE: 20160128
